FAERS Safety Report 8167081-3 (Version None)
Quarter: 2012Q1

REPORT INFORMATION
  Report Type: 
  Country: None (occurrence: None)
  Receive Date: 20120227
  Receipt Date: 20120217
  Transmission Date: 20120608
  Serious: Yes (Hospitalization)
  Sender: FDA-Public Use
  Company Number: PL-ASTRAZENECA-2011SE73542

PATIENT
  Age: 22934 Day
  Sex: Male

DRUGS (14)
  1. PLAVIX [Suspect]
     Indication: CORONARY ARTERY DISEASE
     Route: 048
     Dates: start: 20111129, end: 20111129
  2. RAMIPRIL [Concomitant]
     Indication: HYPERTENSION
     Route: 048
  3. ASPIRIN [Concomitant]
     Route: 048
  4. ATORIS [Concomitant]
     Indication: HYPERLIPIDAEMIA
     Route: 048
  5. AMLODIPINE BESYLATE [Concomitant]
     Indication: HYPERTENSION
     Route: 048
  6. DIUVER [Concomitant]
     Indication: HYPERTENSION
     Route: 048
  7. ZOTAROLIMUS [Concomitant]
  8. METFORMIN HCL [Concomitant]
     Indication: TYPE 2 DIABETES MELLITUS
     Route: 048
  9. CAPROPRIL [Concomitant]
     Indication: HYPERTENSION
     Route: 048
  10. DOXANORM [Concomitant]
     Indication: BENIGN PROSTATIC HYPERPLASIA
     Route: 048
  11. NEBIVOLOL [Concomitant]
     Indication: HYPERTENSION
     Route: 048
  12. PLAVIX [Suspect]
     Route: 048
     Dates: start: 20111201, end: 20111201
  13. DIAPREL MR [Concomitant]
     Indication: TYPE 2 DIABETES MELLITUS
     Route: 048
  14. CLOPIDOGREL [Concomitant]
     Dates: start: 20110831

REACTIONS (2)
  - SINUS BRADYCARDIA [None]
  - TRAUMATIC INTRACRANIAL HAEMORRHAGE [None]
